FAERS Safety Report 6019734-0 (Version None)
Quarter: 2008Q4

REPORT INFORMATION
  Report Type: 
  Country: None (occurrence: None)
  Receive Date: 20081224
  Receipt Date: 20081224
  Transmission Date: 20090506
  Serious: Yes (Other)
  Sender: FDA-Public Use
  Company Number: US-PFIZER INC-2008091974

PATIENT
  Sex: Female

DRUGS (1)
  1. DEPO-MEDROL [Suspect]
     Indication: COMPLEX REGIONAL PAIN SYNDROME
     Route: 030
     Dates: start: 20060101

REACTIONS (1)
  - COMPLEX REGIONAL PAIN SYNDROME [None]
